FAERS Safety Report 6877653-1 (Version None)
Quarter: 2010Q3

REPORT INFORMATION
  Report Type: 
  Country: None (occurrence: None)
  Receive Date: 20100727
  Receipt Date: 20100426
  Transmission Date: 20110219
  Serious: No
  Sender: FDA-Public Use
  Company Number: US-ABBOTT-10P-163-0641930-00

PATIENT
  Sex: Female

DRUGS (3)
  1. SYNTHROID [Suspect]
     Indication: HYPOTHYROIDISM
     Dates: start: 20100423
  2. SYNTHROID [Suspect]
     Dates: start: 20100426
  3. SYNTHROID [Suspect]
     Dates: start: 20000101, end: 20100101

REACTIONS (5)
  - CHEST DISCOMFORT [None]
  - DIZZINESS [None]
  - FEELING JITTERY [None]
  - NERVOUSNESS [None]
  - PALPITATIONS [None]
